FAERS Safety Report 13555290 (Version 1)
Quarter: 2017Q2

REPORT INFORMATION
  Report Type: Spontaneous
  Country: FR (occurrence: FR)
  Receive Date: 20170517
  Receipt Date: 20170517
  Transmission Date: 20170830
  Serious: Yes (Hospitalization)
  Sender: FDA-Public Use
  Company Number: FR-ASTRAZENECA-2017SE51811

PATIENT
  Age: 25141 Day
  Sex: Male

DRUGS (4)
  1. BISOPROLOL FUMARATE. [Suspect]
     Active Substance: BISOPROLOL FUMARATE
     Dosage: TOOK 26 PILLS
     Route: 065
     Dates: end: 20170316
  2. OXYNORM [Suspect]
     Active Substance: OXYCODONE HYDROCHLORIDE
     Dosage: TOOK 10 PILLS
     Route: 065
     Dates: end: 20170316
  3. CRESTOR [Suspect]
     Active Substance: ROSUVASTATIN CALCIUM
     Dosage: TOOK 10 PILLS
     Route: 048
     Dates: end: 20170316
  4. XARELTO [Suspect]
     Active Substance: RIVAROXABAN
     Dosage: TOOK 14 PILLS
     Route: 065
     Dates: end: 20170316

REACTIONS (2)
  - Coma [Recovered/Resolved]
  - Bradycardia [Recovered/Resolved]

NARRATIVE: CASE EVENT DATE: 20170316
